FAERS Safety Report 5255586-4 (Version None)
Quarter: 2007Q1

REPORT INFORMATION
  Report Type: 
  Country: None (occurrence: None)
  Receive Date: 20070305
  Receipt Date: 20070226
  Transmission Date: 20070707
  Serious: Yes (Death)
  Sender: FDA-Public Use
  Company Number: DE-ROXANE LABORATORIES, INC-2007-BP-02710RO

PATIENT
  Age: 16 Year
  Sex: Female

DRUGS (7)
  1. METHOTREXATE [Suspect]
     Indication: MEDULLOBLASTOMA
  2. CYCLOPHOSPHAMIDE [Suspect]
     Indication: MEDULLOBLASTOMA
  3. VINCRISTINE [Suspect]
     Indication: MEDULLOBLASTOMA
  4. ETOPOSIDE [Suspect]
     Indication: MEDULLOBLASTOMA
  5. CISPLATIN [Suspect]
     Indication: MEDULLOBLASTOMA
  6. CYTARABINE [Suspect]
     Indication: MEDULLOBLASTOMA
  7. CARBOPLATIN [Suspect]
     Indication: MEDULLOBLASTOMA

REACTIONS (2)
  - MALIGNANT GLIOMA [None]
  - METASTASIS [None]
